FAERS Safety Report 24422402 (Version 1)
Quarter: 2024Q4

REPORT INFORMATION
  Report Type: Spontaneous
  Country: US (occurrence: US)
  Receive Date: 20241010
  Receipt Date: 20241010
  Transmission Date: 20250115
  Serious: No
  Sender: ABBVIE
  Company Number: US-ABBVIE-5952307

PATIENT
  Sex: Male

DRUGS (3)
  1. SYNTHROID [Suspect]
     Active Substance: LEVOTHYROXINE SODIUM
     Indication: Hypothyroidism
     Route: 048
     Dates: start: 2023
  2. SYNTHROID [Suspect]
     Active Substance: LEVOTHYROXINE SODIUM
     Indication: Hypothyroidism
     Route: 048
  3. SYNTHROID [Suspect]
     Active Substance: LEVOTHYROXINE SODIUM
     Indication: Hypothyroidism
     Route: 048
     Dates: start: 2021

REACTIONS (9)
  - Eructation [Not Recovered/Not Resolved]
  - Extrasystoles [Unknown]
  - Blood thyroid stimulating hormone abnormal [Unknown]
  - Weight increased [Recovering/Resolving]
  - Blood thyroid stimulating hormone increased [Unknown]
  - Dyspepsia [Not Recovered/Not Resolved]
  - Ventricular extrasystoles [Not Recovered/Not Resolved]
  - Anxiety [Unknown]
  - Nervousness [Unknown]

NARRATIVE: CASE EVENT DATE: 20240901
